FAERS Safety Report 21161062 (Version 5)
Quarter: 2023Q4

REPORT INFORMATION
  Report Type: Spontaneous
  Country: CA (occurrence: CA)
  Receive Date: 20220802
  Receipt Date: 20231019
  Transmission Date: 20240109
  Serious: Yes (Other)
  Sender: FDA-Public Use
  Company Number: CA-PFIZER INC-202200629805

PATIENT
  Age: 28 Year
  Sex: Female
  Weight: 144.9 kg

DRUGS (2)
  1. ABRILADA [Suspect]
     Active Substance: ADALIMUMAB-AFZB
     Indication: Hidradenitis
     Dosage: 80 MG (160 MG WEEK 0, 80 MG WEEK 2, 40 MG EVERY WEEK STARTING WEEK 4)
     Route: 058
     Dates: start: 20220425
  2. ABRILADA [Suspect]
     Active Substance: ADALIMUMAB-AFZB
     Dosage: 160 MG WEEK 0, 80 MG WEEK 2, 40 MG EVERY WEEK STARTING WEEK 4 PREFILLED PEN (1DF)
     Route: 058
     Dates: start: 20220425

REACTIONS (4)
  - Spina bifida [Not Recovered/Not Resolved]
  - Maternal exposure during pregnancy [Unknown]
  - Incorrect dose administered [Unknown]
  - Condition aggravated [Not Recovered/Not Resolved]

NARRATIVE: CASE EVENT DATE: 20220101
